FAERS Safety Report 10302285 (Version 1)
Quarter: 2014Q3

REPORT INFORMATION
  Report Type: Spontaneous
  Country: US (occurrence: None)
  Receive Date: 20140710
  Receipt Date: 20140710
  Transmission Date: 20150326
  Serious: Yes (Death, Other)
  Sender: FDA-Public Use
  Company Number: None

PATIENT
  Sex: Female
  Weight: 90.72 kg

DRUGS (16)
  1. DEVIL^S CLAW [Concomitant]
     Active Substance: UNSPECIFIED INGREDIENT
  2. SYNTHROID [Suspect]
     Active Substance: LEVOTHYROXINE SODIUM
     Indication: HYPOTHYROIDISM
     Route: 048
  3. GLUCOTIZOL [Concomitant]
  4. TIAXAC [Concomitant]
  5. ZYRTEC [Concomitant]
     Active Substance: CETIRIZINE HYDROCHLORIDE
  6. ULTRAM [Concomitant]
     Active Substance: TRAMADOL HYDROCHLORIDE
  7. FIBER [Concomitant]
     Active Substance: PSYLLIUM HUSK
  8. ARMOUR THYROID [Concomitant]
     Active Substance: THYROID, PORCINE\THYROID, UNSPECIFIED
  9. ALLOPURINOL. [Concomitant]
     Active Substance: ALLOPURINOL
  10. ZANTAC [Concomitant]
     Active Substance: RANITIDINE HYDROCHLORIDE
  11. ECHINACEA [Concomitant]
     Active Substance: ECHINACEA, UNSPECIFIED
  12. CELEXA [Concomitant]
     Active Substance: CITALOPRAM HYDROBROMIDE
  13. PRINIVIL [Concomitant]
     Active Substance: LISINOPRIL
  14. ZOCOR [Concomitant]
     Active Substance: SIMVASTATIN
  15. COLD LIVER OIL [Concomitant]
  16. VITAMIN C [Concomitant]
     Active Substance: ASCORBIC ACID

REACTIONS (1)
  - Headache [None]
